FAERS Safety Report 8381437-5 (Version None)
Quarter: 2012Q2

REPORT INFORMATION
  Report Type: 
  Country: None (occurrence: None)
  Receive Date: 20120523
  Receipt Date: 20120517
  Transmission Date: 20120825
  Serious: Yes (Death, Hospitalization)
  Sender: FDA-Public Use
  Company Number: US-CELGENEUS-163-C4047-12051584

PATIENT
  Sex: Male
  Weight: 77.18 kg

DRUGS (26)
  1. DEXAMETHASONE [Suspect]
     Indication: MULTIPLE MYELOMA
     Dosage: 4 MILLIGRAM
     Route: 048
  2. AMLODIPINE BESYLATE [Concomitant]
     Dosage: 10 MILLIGRAM
     Route: 048
  3. NIASPAN [Concomitant]
     Dosage: 500 MILLIGRAM
     Route: 048
  4. FEOSOL [Concomitant]
     Dosage: 200 MILLIGRAM
     Route: 048
  5. MAGNESIUM OXIDE [Concomitant]
     Dosage: 400 MILLIGRAM
     Route: 048
  6. ACTOS [Concomitant]
     Dosage: 30 MILLIGRAM
     Route: 048
  7. IMODIUM [Concomitant]
     Route: 065
     Dates: start: 20120301
  8. HYDROCORTISONE [Concomitant]
     Dosage: 2.5 PERCENT
     Route: 061
  9. METFORMIN HCL [Concomitant]
     Dosage: 1000 MILLIGRAM
     Route: 048
  10. OMEGA-3 FATTY ACIDS [Concomitant]
     Dosage: 1 GRAM
     Route: 048
  11. CC-4047 [Suspect]
     Indication: MULTIPLE MYELOMA
     Dosage: 4 MILLIGRAM
     Route: 048
     Dates: start: 20120413, end: 20120416
  12. REVLIMID [Suspect]
     Dosage: 5 MILLIGRAM
     Route: 048
  13. CC-4047 [Suspect]
     Dosage: 4 MILLIGRAM
     Route: 048
     Dates: start: 20120504, end: 20120508
  14. CLARITHROMYCIN [Suspect]
     Indication: MULTIPLE MYELOMA
     Dosage: 500 MILLIGRAM
     Route: 048
     Dates: start: 20120413
  15. ASPIRIN [Concomitant]
     Dosage: 81 MILLIGRAM
     Route: 048
  16. ATENOLOL [Concomitant]
     Dosage: 100 MILLIGRAM
     Route: 048
  17. POTASSIUM CHLORIDE [Concomitant]
     Dosage: 20 MILLIEQUIVALENTS
     Route: 048
  18. PRILOSEC [Concomitant]
     Dosage: 20 MILLIGRAM
     Route: 048
  19. VASOTEC [Concomitant]
     Dosage: 20 MILLIGRAM
     Route: 048
  20. CC-4047 [Suspect]
     Dosage: 2 MILLIGRAM
     Route: 048
     Dates: start: 20120508
  21. ATORVASTATIN CALCIUM [Concomitant]
     Dosage: 10 MILLIGRAM
     Route: 048
  22. DARBEPOETIN ALFA-POLYSORBATE [Concomitant]
     Dosage: .45 MICROGRAM/KILOGRAM
     Route: 065
  23. VALTREX [Concomitant]
     Dosage: 500 MILLIGRAM
     Route: 048
  24. ZOMETA [Concomitant]
     Dosage: 4MG/5ML
     Route: 065
  25. CC-4047 [Suspect]
     Dosage: 2 MILLIGRAM
     Route: 048
     Dates: start: 20120427
  26. GLYBURIDE [Concomitant]
     Dosage: 5 MILLIGRAM
     Route: 048

REACTIONS (3)
  - DEATH [None]
  - SEPSIS [None]
  - PANCYTOPENIA [None]
